FAERS Safety Report 9830972 (Version 3)
Quarter: 2014Q1

REPORT INFORMATION
  Report Type: Report from Study
  Country: CA (occurrence: CA)
  Receive Date: 20140120
  Receipt Date: 20140124
  Transmission Date: 20141002
  Serious: Yes (Other)
  Sender: FDA-Public Use
  Company Number: PHHY2014CA004258

PATIENT
  Age: 72 Year
  Sex: Female

DRUGS (8)
  1. ACLASTA [Suspect]
     Indication: OSTEOPOROSIS POSTMENOPAUSAL
     Dosage: 5 MG/100 ML, UNK
     Route: 042
     Dates: start: 20140113
  2. OXAZEPAM [Concomitant]
     Dosage: 1 DF, PRN
  3. FLEXERIL [Concomitant]
     Dosage: 1 DF, TID PRN
  4. TRYPTOPHAN                         /07186401/ [Concomitant]
     Dosage: 2 G, QHS
     Route: 048
  5. VITAMIN D [Concomitant]
     Dosage: UNK UKN, QD
  6. BETAMETHASONE [Concomitant]
     Dosage: UNK UKN, PRN
  7. LAMISIL 1 [Concomitant]
     Dosage: UNK UKN, PRN
  8. VAGIFEM [Concomitant]
     Dosage: UNK UKN, PRN

REACTIONS (10)
  - Disorientation [Recovering/Resolving]
  - Feeling hot [Recovering/Resolving]
  - Fall [Recovering/Resolving]
  - Head injury [Recovering/Resolving]
  - Wound [Recovering/Resolving]
  - Wound haemorrhage [Recovering/Resolving]
  - Muscle contusion [Recovering/Resolving]
  - Contusion [Recovering/Resolving]
  - Loss of consciousness [Recovering/Resolving]
  - Dizziness [Recovering/Resolving]
